FAERS Safety Report 8565185-4 (Version None)
Quarter: 2012Q3

REPORT INFORMATION
  Report Type: 
  Country: None (occurrence: None)
  Receive Date: 20120803
  Receipt Date: 20120719
  Transmission Date: 20120928
  Serious: No
  Sender: FDA-Public Use
  Company Number: US-ASTRAZENECA-2012SE50811

PATIENT
  Age: 86 Year
  Sex: Female
  Weight: 59 kg

DRUGS (3)
  1. BENADRYL [Concomitant]
     Indication: MULTIPLE ALLERGIES
  2. NATURAL MAGNESIUM [Concomitant]
  3. NEXIUM [Suspect]
     Route: 048

REACTIONS (1)
  - AXILLARY MASS [None]
